FAERS Safety Report 16321974 (Version 1)
Quarter: 2019Q2

REPORT INFORMATION
  Report Type: Spontaneous
  Country: PT (occurrence: PT)
  Receive Date: 20190516
  Receipt Date: 20190516
  Transmission Date: 20190711
  Serious: Yes (Hospitalization, Other)
  Sender: FDA-Public Use
  Company Number: PT-TEVA-2019-PT-1050137

PATIENT
  Age: 57 Year
  Sex: Female

DRUGS (9)
  1. ESCITALOPRAM [Suspect]
     Active Substance: ESCITALOPRAM OXALATE
     Dosage: 14 CP OF 20 MG + 27 CP OF 10 MG
     Route: 048
     Dates: start: 20190423, end: 20190423
  2. LORAZEPAM. [Suspect]
     Active Substance: LORAZEPAM
     Dosage: 72 CP OF 2.5 MG
     Route: 048
     Dates: start: 20190423, end: 20190423
  3. DIAZEPAM. [Concomitant]
     Active Substance: DIAZEPAM
  4. HYDROXYCARBAMIDE [Concomitant]
     Active Substance: HYDROXYUREA
  5. OLANZAPINE. [Concomitant]
     Active Substance: OLANZAPINE
  6. TOPIRAMATE. [Concomitant]
     Active Substance: TOPIRAMATE
  7. ACETYLSALICYLIC ACID [Concomitant]
     Active Substance: ASPIRIN
  8. BUPROPION. [Concomitant]
     Active Substance: BUPROPION
  9. VENLAFAXINE [Concomitant]
     Active Substance: VENLAFAXINE HYDROCHLORIDE

REACTIONS (4)
  - Somnolence [Recovered/Resolved]
  - Intentional overdose [Recovered/Resolved]
  - Altered state of consciousness [Recovered/Resolved]
  - Hypotension [Recovered/Resolved]

NARRATIVE: CASE EVENT DATE: 20190423
